FAERS Safety Report 9846641 (Version 3)
Quarter: 2014Q1

REPORT INFORMATION
  Report Type: Spontaneous
  Country: JP (occurrence: JP)
  Receive Date: 20140127
  Receipt Date: 20140312
  Transmission Date: 20141002
  Serious: Yes (Hospitalization)
  Sender: FDA-Public Use
  Company Number: JP-GLAXOSMITHKLINE-B0963149A

PATIENT
  Age: 88 Year
  Sex: Female

DRUGS (8)
  1. VALTREX [Suspect]
     Indication: HERPES ZOSTER
     Dosage: 1000MG THREE TIMES PER DAY
     Route: 048
     Dates: start: 20140118, end: 20140120
  2. NIFEDIPINE [Concomitant]
     Indication: HYPERTENSION
     Dosage: 40MG PER DAY
     Route: 048
     Dates: end: 20140121
  3. RENIVACE [Concomitant]
     Indication: HYPERTENSION
     Dosage: 5MG PER DAY
     Route: 048
     Dates: end: 20140121
  4. CRESTOR [Concomitant]
     Indication: HYPERLIPIDAEMIA
     Dosage: 2.5MG PER DAY
     Route: 048
     Dates: end: 20140121
  5. CARVEDILOL [Concomitant]
     Indication: HYPERTENSION
     Dosage: 2.5MG PER DAY
     Route: 048
     Dates: end: 20140121
  6. BAYASPIRIN [Concomitant]
     Indication: THROMBOSIS PROPHYLAXIS
     Dosage: 100MG PER DAY
     Route: 048
     Dates: end: 20140121
  7. MERISLON [Concomitant]
     Indication: DIZZINESS
     Dosage: 6MG THREE TIMES PER DAY
     Route: 048
     Dates: end: 20140121
  8. FUROSEMIDE [Concomitant]
     Indication: RENAL DISORDER
     Route: 042
     Dates: start: 20140119, end: 20140119

REACTIONS (3)
  - Toxic encephalopathy [Recovered/Resolved]
  - Altered state of consciousness [Recovering/Resolving]
  - Renal disorder [Recovering/Resolving]
